FAERS Safety Report 20231992 (Version 2)
Quarter: 2022Q1

REPORT INFORMATION
  Report Type: Report from Study
  Country: US (occurrence: US)
  Receive Date: 20211227
  Receipt Date: 20220216
  Transmission Date: 20220423
  Serious: Yes (Death)
  Sender: FDA-Public Use
  Company Number: US-BAUSCH-BL-2018-032240

PATIENT
  Age: 67 Year
  Sex: Male
  Weight: 90.800 kg

DRUGS (6)
  1. RELISTOR [Suspect]
     Active Substance: METHYLNALTREXONE BROMIDE
     Indication: Constipation
     Dosage: STARTED PROBABLY 5 YEARS AGO
     Route: 058
     Dates: start: 2017
  2. RELISTOR [Suspect]
     Active Substance: METHYLNALTREXONE BROMIDE
     Indication: Diabetic gastroparesis
     Dosage: NOT TAKING IT EVERY OTHER DAY. 0.6 MG/ML AS DIRECTED.
     Route: 058
     Dates: end: 201901
  3. METFORMIN [Concomitant]
     Active Substance: METFORMIN HYDROCHLORIDE
     Indication: Type 2 diabetes mellitus
  4. HYDROMORPHONE [Concomitant]
     Active Substance: HYDROMORPHONE
     Indication: Product used for unknown indication
  5. ZOFRAN [Concomitant]
     Active Substance: ONDANSETRON HYDROCHLORIDE
     Indication: Product used for unknown indication
     Route: 060
  6. MORPHINE SULFATE [Concomitant]
     Active Substance: MORPHINE SULFATE
     Indication: Pain
     Dates: start: 1999

REACTIONS (6)
  - Cardiac disorder [Fatal]
  - Constipation [Not Recovered/Not Resolved]
  - Therapeutic response unexpected [Unknown]
  - Therapy interrupted [Unknown]
  - Intentional product use issue [Unknown]
  - Product supply issue [Unknown]
